FAERS Safety Report 6216612-9 (Version None)
Quarter: 2009Q2

REPORT INFORMATION
  Report Type: 
  Country: None (occurrence: None)
  Receive Date: 20090605
  Receipt Date: 20090602
  Transmission Date: 20091009
  Serious: Yes (Death, Other)
  Sender: FDA-Public Use
  Company Number: PHHY2009AU15404

PATIENT
  Age: 36 Year
  Sex: Female
  Weight: 43 kg

DRUGS (3)
  1. CYCLOSPORINE [Suspect]
     Indication: SYSTEMIC LUPUS ERYTHEMATOSUS
     Dosage: 50 MG, BID
  2. METHOTREXATE [Suspect]
     Dosage: 15 MG, QW
  3. FOLIC ACID [Concomitant]
     Dosage: 5 MG, QW

REACTIONS (23)
  - ABDOMINAL DISTENSION [None]
  - ABDOMINAL PAIN LOWER [None]
  - ABDOMINAL REBOUND TENDERNESS [None]
  - ANURIA [None]
  - CHILLS [None]
  - DIFFUSE VASCULITIS [None]
  - FISTULA [None]
  - ILEAL PERFORATION [None]
  - ILEOSTOMY [None]
  - LEUKOCYTOCLASTIC VASCULITIS [None]
  - LUNG INFILTRATION [None]
  - OEDEMA PERIPHERAL [None]
  - OVARIAN CYST [None]
  - PERITONITIS [None]
  - PROTEINURIA [None]
  - PYREXIA [None]
  - RASH MACULO-PAPULAR [None]
  - RESPIRATORY ACIDOSIS [None]
  - RESPIRATORY DISORDER [None]
  - RESPIRATORY TRACT HAEMORRHAGE [None]
  - SMALL INTESTINAL RESECTION [None]
  - TACHYCARDIA [None]
  - VASCULITIS GASTROINTESTINAL [None]
